FAERS Safety Report 6674552-5 (Version None)
Quarter: 2010Q2

REPORT INFORMATION
  Report Type: 
  Country: None (occurrence: None)
  Receive Date: 20100409
  Receipt Date: 20100331
  Transmission Date: 20101027
  Serious: Yes (Hospitalization)
  Sender: FDA-Public Use
  Company Number: US-ASTRAZENECA-2010SE14149

PATIENT
  Age: 12075 Day
  Sex: Female

DRUGS (4)
  1. SEROQUEL [Suspect]
     Indication: ACUTE PSYCHOSIS
     Dosage: 2000 MG
     Route: 048
     Dates: start: 20091017, end: 20091017
  2. FLUOXETINE [Concomitant]
     Route: 048
  3. ALPRAZOLAM [Concomitant]
     Route: 048
  4. EFFEXOR [Concomitant]
     Route: 048

REACTIONS (3)
  - DRUG ABUSE [None]
  - OVERDOSE [None]
  - SOPOR [None]
